FAERS Safety Report 19522251 (Version 2)
Quarter: 2021Q4

REPORT INFORMATION
  Report Type: Spontaneous
  Country: PL (occurrence: PL)
  Receive Date: 20210712
  Receipt Date: 20211104
  Transmission Date: 20220303
  Serious: Yes (Death, Other)
  Sender: FDA-Public Use
  Company Number: PL-BAYER-2021-166658

PATIENT
  Age: 73 Year
  Sex: Male
  Weight: 65 kg

DRUGS (1)
  1. XOFIGO [Suspect]
     Active Substance: RADIUM RA-223 DICHLORIDE
     Indication: Neoplasm prostate
     Dosage: UNK
     Dates: start: 20201022, end: 202010

REACTIONS (15)
  - Thrombocytopenia [Fatal]
  - Neutropenia [Fatal]
  - Pancytopenia [Fatal]
  - Leukopenia [Fatal]
  - Myelosuppression [Fatal]
  - Coagulopathy [None]
  - Anaemia [None]
  - Syncope [None]
  - Skin haemorrhage [None]
  - Asthenia [None]
  - Petechiae [None]
  - Fall [None]
  - Pallor [None]
  - Decreased appetite [None]
  - Purpura [None]

NARRATIVE: CASE EVENT DATE: 20210301
